FAERS Safety Report 15008162 (Version 3)
Quarter: 2020Q2

REPORT INFORMATION
  Report Type: Spontaneous
  Country: US (occurrence: US)
  Receive Date: 20180613
  Receipt Date: 20200615
  Transmission Date: 20200713
  Serious: No
  Sender: FDA-Public Use
  Company Number: US-GALDERMA-US18013114

PATIENT
  Age: 29 Year
  Sex: Female

DRUGS (6)
  1. PROACTIV MD DEEP CLEANSING FACE WASH [Concomitant]
     Active Substance: COSMETICS
     Route: 061
     Dates: start: 20180210, end: 20180220
  2. OXCARBAZEPINE. [Concomitant]
     Active Substance: OXCARBAZEPINE
  3. PROACTIV MD DAILY OIL CONTROL SPF 30 [Suspect]
     Active Substance: AVOBENZONE\OCTISALATE\OCTOCRYLENE
     Indication: PRODUCT USED FOR UNKNOWN INDICATION
     Route: 061
     Dates: start: 20180210, end: 20180220
  4. MELOXICAM. [Concomitant]
     Active Substance: MELOXICAM
  5. PROACTIV MD ADAPALENE ACNE TREATMENT [Suspect]
     Active Substance: ADAPALENE
     Indication: PRODUCT USED FOR UNKNOWN INDICATION
     Dosage: 0.1%
     Route: 061
     Dates: start: 20180210, end: 20180220
  6. CLONAZEPAM. [Concomitant]
     Active Substance: CLONAZEPAM

REACTIONS (4)
  - Erythema [Not Recovered/Not Resolved]
  - Skin irritation [Recovering/Resolving]
  - Skin burning sensation [Not Recovered/Not Resolved]
  - Skin swelling [Not Recovered/Not Resolved]

NARRATIVE: CASE EVENT DATE: 20180218
